FAERS Safety Report 5765201-9 (Version None)
Quarter: 2008Q2

REPORT INFORMATION
  Report Type: 
  Country: None (occurrence: None)
  Receive Date: 20080610
  Receipt Date: 20080610
  Transmission Date: 20081010
  Serious: No
  Sender: FDA-Public Use
  Company Number: None

PATIENT

DRUGS (1)
  1. WARFARIN SODIUM [Suspect]
     Dates: start: 20080610

REACTIONS (1)
  - PHARMACEUTICAL PRODUCT COMPLAINT [None]
